FAERS Safety Report 4507459-X (Version None)
Quarter: 2004Q4

REPORT INFORMATION
  Report Type: 
  Country: None (occurrence: None)
  Receive Date: 20041118
  Receipt Date: 20041103
  Transmission Date: 20050328
  Serious: Yes (Other)
  Sender: FDA-Public Use
  Company Number: PHEH2004US11489

PATIENT
  Age: 74 Year
  Sex: Male

DRUGS (7)
  1. VISUDYNE [Suspect]
     Indication: MACULAR DEGENERATION
     Dates: start: 20040930, end: 20040930
  2. TRICOR [Concomitant]
  3. ACTOSE [Concomitant]
  4. GLYNASE [Concomitant]
  5. PRINIVIL [Concomitant]
  6. PRAVACHOL [Concomitant]
  7. AVODART [Concomitant]

REACTIONS (7)
  - BURNS SECOND DEGREE [None]
  - ERYTHEMA [None]
  - INJECTION SITE BURNING [None]
  - PROCEDURAL COMPLICATION [None]
  - PURULENT DISCHARGE [None]
  - SECRETION DISCHARGE [None]
  - SKIN NECROSIS [None]
